FAERS Safety Report 22130417 (Version 2)
Quarter: 2024Q1

REPORT INFORMATION
  Report Type: Spontaneous
  Country: ZA (occurrence: ZA)
  Receive Date: 20230323
  Receipt Date: 20240229
  Transmission Date: 20240410
  Serious: Yes (Death, Other)
  Sender: FDA-Public Use
  Company Number: ZA-PFIZER INC-PV202300051596

PATIENT
  Age: 66 Year
  Sex: Male
  Weight: 40 kg

DRUGS (6)
  1. VORICONAZOLE [Suspect]
     Active Substance: VORICONAZOLE
     Indication: Aspergillus infection
     Dosage: 400 MG, (12H X 2 DOSES) (LOADING DOSE)
     Route: 042
     Dates: start: 20230216
  2. VORICONAZOLE [Suspect]
     Active Substance: VORICONAZOLE
     Dosage: 200 MG, (12H )
     Route: 042
  3. VORICONAZOLE [Suspect]
     Active Substance: VORICONAZOLE
     Dosage: 300 MG, (12HR)
     Route: 042
     Dates: end: 20230301
  4. VFEND [Suspect]
     Active Substance: VORICONAZOLE
     Indication: Aspergillus infection
     Dosage: 300 MG, (12H)
     Route: 042
     Dates: start: 20230301
  5. VORICONAZOLE [Suspect]
     Active Substance: VORICONAZOLE
     Indication: Aspergillus infection
     Dosage: 300MG, 12H
     Route: 042
  6. AMBISOME [Concomitant]
     Active Substance: AMPHOTERICIN B
     Indication: Aspergillus infection
     Dosage: UNK

REACTIONS (2)
  - Death [Fatal]
  - Drug level below therapeutic [Recovering/Resolving]

NARRATIVE: CASE EVENT DATE: 20230218
